FAERS Safety Report 15736109 (Version 1)
Quarter: 2018Q4

REPORT INFORMATION
  Report Type: Spontaneous
  Country: US (occurrence: US)
  Receive Date: 20181203
  Receipt Date: 20181203
  Transmission Date: 20190205
  Serious: Yes (Hospitalization)
  Sender: FDA-Public Use
  Company Number: None

PATIENT
  Age: 62 Year
  Sex: Male
  Weight: 46.4 kg

DRUGS (4)
  1. CYTARABINE. [Suspect]
     Active Substance: CYTARABINE
     Dates: end: 20181116
  2. ETOPOSIDE (VP-16) [Suspect]
     Active Substance: ETOPOSIDE
     Dates: end: 20181116
  3. METHOTREXATE. [Suspect]
     Active Substance: METHOTREXATE
     Route: 037
     Dates: end: 20181112
  4. ONCASPAR [Suspect]
     Active Substance: PEGASPARGASE
     Dates: end: 20181116

REACTIONS (7)
  - Culture positive [None]
  - Bacterial infection [None]
  - Oropharyngeal pain [None]
  - Vomiting [None]
  - Productive cough [None]
  - Syncope [None]
  - Febrile neutropenia [None]

NARRATIVE: CASE EVENT DATE: 20181127
